FAERS Safety Report 20885869 (Version 1)
Quarter: 2022Q2

REPORT INFORMATION
  Report Type: Spontaneous
  Country: SK (occurrence: SK)
  Receive Date: 20220527
  Receipt Date: 20220527
  Transmission Date: 20220720
  Serious: Yes (Hospitalization)
  Sender: FDA-Public Use
  Company Number: None

PATIENT
  Age: 80 Year
  Sex: Male
  Weight: 99 kg

DRUGS (4)
  1. PENICILLIN V [Suspect]
     Active Substance: PENICILLIN V
     Indication: Erysipelas
     Dosage: 500 MG, Q12H
     Route: 048
     Dates: start: 20211225, end: 20220102
  2. CLINDAMYCIN [Suspect]
     Active Substance: CLINDAMYCIN
     Indication: Erysipelas
     Dosage: 300 MG, Q8H
     Route: 065
     Dates: start: 20220103, end: 20220105
  3. METRONIDAZOLE [Suspect]
     Active Substance: METRONIDAZOLE
     Indication: Erysipelas
     Dosage: 100 MG, Q8H
     Route: 065
     Dates: start: 20220103, end: 20220105
  4. IBUPROFEN [Suspect]
     Active Substance: IBUPROFEN
     Indication: Pain in extremity
     Dosage: 400 MG, AS NECESSARY
     Route: 048
     Dates: start: 20211225, end: 20220102

REACTIONS (1)
  - Rash maculo-papular [Recovered/Resolved]
